FAERS Safety Report 9100029 (Version 2)
Quarter: 2013Q4

REPORT INFORMATION
  Report Type: Spontaneous
  Country: US (occurrence: US)
  Receive Date: 20130215
  Receipt Date: 20131206
  Transmission Date: 20140711
  Serious: No
  Sender: FDA-Public Use
  Company Number: US-PFIZER INC-2013058233

PATIENT
  Age: 48 Year
  Sex: Female
  Weight: 109 kg

DRUGS (8)
  1. EFFEXOR XR [Suspect]
     Indication: POST-TRAUMATIC STRESS DISORDER
     Dosage: 300 MG, 1X/DAY
     Route: 048
     Dates: end: 201301
  2. EFFEXOR XR [Suspect]
     Indication: ANXIETY
  3. EFFEXOR XR [Suspect]
     Indication: DEPRESSION
  4. VENLAFAXINE HCL [Suspect]
     Indication: POST-TRAUMATIC STRESS DISORDER
     Dosage: 300 MG, 1X/DAY
     Route: 048
     Dates: start: 20130106
  5. VENLAFAXINE HCL [Suspect]
     Indication: ANXIETY
  6. VENLAFAXINE HCL [Suspect]
     Indication: DEPRESSION
  7. ATENOLOL [Concomitant]
     Indication: CARDIAC DISORDER
     Dosage: 5 MG, UNK
  8. LEVOTHYROXINE [Concomitant]
     Indication: HYPOTHYROIDISM
     Dosage: UNK

REACTIONS (5)
  - Feeling abnormal [Not Recovered/Not Resolved]
  - Malaise [Not Recovered/Not Resolved]
  - Affect lability [Not Recovered/Not Resolved]
  - Drug ineffective [Unknown]
  - Drug prescribing error [Unknown]
